FAERS Safety Report 18180610 (Version 1)
Quarter: 2020Q3

REPORT INFORMATION
  Report Type: Spontaneous
  Country: US (occurrence: US)
  Receive Date: 20200821
  Receipt Date: 20200821
  Transmission Date: 20201103
  Serious: Yes (Hospitalization)
  Sender: FDA-Public Use
  Company Number: US-ELI_LILLY_AND_COMPANY-US202008004379

PATIENT
  Age: 62 Year
  Sex: Female
  Weight: 71.67 kg

DRUGS (2)
  1. VERZENIO [Suspect]
     Active Substance: ABEMACICLIB
     Indication: BREAST CANCER FEMALE
     Dosage: 50 MG, BID
     Route: 048
     Dates: start: 20190502
  2. VERZENIO [Suspect]
     Active Substance: ABEMACICLIB
     Indication: BONE NEOPLASM

REACTIONS (2)
  - Vomiting [Unknown]
  - Nausea [Unknown]
